FAERS Safety Report 14138144 (Version 2)
Quarter: 2018Q1

REPORT INFORMATION
  Report Type: Spontaneous
  Country: IT (occurrence: IT)
  Receive Date: 20171027
  Receipt Date: 20180315
  Transmission Date: 20180508
  Serious: Yes (Other)
  Sender: FDA-Public Use
  Company Number: IT-PFIZER INC-2017457815

PATIENT
  Age: 35 Year
  Sex: Female

DRUGS (5)
  1. PREGABALIN. [Suspect]
     Active Substance: PREGABALIN
     Indication: INTENTIONAL SELF-INJURY
     Dosage: 3150 MG, TOTAL
     Route: 048
     Dates: start: 20160911, end: 20160911
  2. PROMAZINE [Concomitant]
     Active Substance: PROMAZINE
     Dosage: UNK
  3. FLUOXETINE [Suspect]
     Active Substance: FLUOXETINE HYDROCHLORIDE
     Indication: INTENTIONAL SELF-INJURY
     Dosage: 1400 MG, TOTAL
     Route: 048
     Dates: start: 20160911, end: 20160911
  4. CLOTIAPINA [Concomitant]
     Active Substance: CLOTHIAPINE
     Dosage: UNK
  5. MODALINA [Suspect]
     Active Substance: TRIFLUOPERAZINE HYDROCHLORIDE
     Dosage: 150 MG, TOTAL
     Route: 048
     Dates: start: 20160911, end: 20160911

REACTIONS (2)
  - Drug abuse [Recovering/Resolving]
  - Sopor [Recovering/Resolving]

NARRATIVE: CASE EVENT DATE: 20160911
